FAERS Safety Report 7565527-2 (Version None)
Quarter: 2011Q2

REPORT INFORMATION
  Report Type: 
  Country: None (occurrence: None)
  Receive Date: 20110623
  Receipt Date: 20080827
  Transmission Date: 20111010
  Serious: No
  Sender: FDA-Public Use
  Company Number: 2008BI022464

PATIENT
  Age: 30 Year
  Sex: Female

DRUGS (1)
  1. TYSABRI [Suspect]
     Indication: MULTIPLE SCLEROSIS
     Route: 042
     Dates: start: 20080613

REACTIONS (7)
  - NERVOUSNESS [None]
  - HEADACHE [None]
  - HEART RATE INCREASED [None]
  - MUSCULOSKELETAL STIFFNESS [None]
  - FATIGUE [None]
  - PAIN IN EXTREMITY [None]
  - LIVER FUNCTION TEST ABNORMAL [None]
